FAERS Safety Report 11442924 (Version 6)
Quarter: 2015Q4

REPORT INFORMATION
  Report Type: Report from Study
  Country: US (occurrence: US)
  Receive Date: 20150901
  Receipt Date: 20151023
  Transmission Date: 20160304
  Serious: Yes (Hospitalization, Other)
  Sender: FDA-Public Use
  Company Number: US-BAYER-2015-409307

PATIENT
  Age: 69 Year
  Sex: Female

DRUGS (2)
  1. NEXAVAR [Suspect]
     Active Substance: SORAFENIB
     Indication: HEPATIC CANCER
     Dosage: 400 MG, BID
     Route: 048
     Dates: start: 2015
  2. NEXAVAR [Suspect]
     Active Substance: SORAFENIB
     Indication: HEPATIC CANCER
     Dosage: 400 MG, BID
     Route: 048
     Dates: start: 20150821, end: 2015

REACTIONS (15)
  - Hospitalisation [Recovered/Resolved]
  - Urinary tract infection [Recovered/Resolved]
  - Nausea [None]
  - Flatulence [None]
  - Feeling abnormal [None]
  - Decreased appetite [None]
  - Gastrointestinal disorder [None]
  - Fungal infection [Recovered/Resolved]
  - Abdominal pain upper [None]
  - Constipation [None]
  - Ascites [None]
  - Palpitations [Recovered/Resolved]
  - Nasal congestion [None]
  - Diarrhoea [None]
  - Injection site pain [None]

NARRATIVE: CASE EVENT DATE: 2015
